FAERS Safety Report 6834348-8 (Version None)
Quarter: 2010Q3

REPORT INFORMATION
  Report Type: 
  Country: None (occurrence: None)
  Receive Date: 20100712
  Receipt Date: 20070425
  Transmission Date: 20110219
  Serious: No
  Sender: FDA-Public Use
  Company Number: US-PFIZER INC-2007034434

PATIENT
  Sex: Male
  Weight: 88.636 kg

DRUGS (8)
  1. CHANTIX [Suspect]
     Indication: SMOKING CESSATION THERAPY
     Dates: start: 20070419
  2. TEMAZEPAM [Concomitant]
     Indication: SLEEP DISORDER
  3. ALL OTHER THERAPEUTIC PRODUCTS [Concomitant]
  4. CLONIDINE [Concomitant]
     Indication: BLOOD PRESSURE ABNORMAL
  5. SERTRALINE HCL [Concomitant]
     Indication: DEPRESSION
  6. LORAZEPAM [Concomitant]
  7. NORVASC [Concomitant]
  8. DOXEPIN HCL [Concomitant]
     Indication: DEPRESSION

REACTIONS (1)
  - DRUG INEFFECTIVE [None]
